FAERS Safety Report 9770614 (Version 2)
Quarter: 2014Q1

REPORT INFORMATION
  Report Type: Spontaneous
  Country: US (occurrence: US)
  Receive Date: 20131218
  Receipt Date: 20140113
  Transmission Date: 20141002
  Serious: Yes (Other)
  Sender: FDA-Public Use
  Company Number: US-GLAXOSMITHKLINE-A1053743A

PATIENT
  Age: 85 Year
  Sex: Male

DRUGS (21)
  1. ADVAIR HFA [Suspect]
     Indication: CHRONIC OBSTRUCTIVE PULMONARY DISEASE
     Dosage: 2PUFF TWICE PER DAY
     Route: 055
  2. PRESERVISION [Concomitant]
     Dosage: 2CAP TWICE PER DAY
     Route: 065
  3. SPIRIVA [Concomitant]
  4. FLUVASTATIN [Concomitant]
  5. LOSARTAN [Concomitant]
  6. METOPROLOL [Concomitant]
  7. ALLOPURINOL [Concomitant]
  8. OMEPRAZOLE [Concomitant]
  9. FLUTICASONE [Concomitant]
  10. SERTRALINE [Concomitant]
  11. FUROSEMIDE [Concomitant]
  12. AZITHROMYCIN [Concomitant]
  13. CALCIUM [Concomitant]
  14. ASPIRIN [Concomitant]
  15. DESONIDE [Concomitant]
  16. GARLIC [Concomitant]
  17. MULTIVITAMIN [Concomitant]
  18. NITRO [Concomitant]
  19. MUCINEX [Concomitant]
  20. HYDROCODONE [Concomitant]
  21. FINASTERIDE [Concomitant]

REACTIONS (4)
  - Age-related macular degeneration [Unknown]
  - Eye haemorrhage [Recovered/Resolved]
  - Visual impairment [Unknown]
  - Impaired driving ability [Unknown]
